FAERS Safety Report 10162832 (Version 1)
Quarter: 2014Q2

REPORT INFORMATION
  Report Type: Report from Study
  Country: CA (occurrence: CA)
  Receive Date: 20140509
  Receipt Date: 20140509
  Transmission Date: 20141212
  Serious: Yes (Other)
  Sender: FDA-Public Use
  Company Number: CA-ABBVIE-14P-028-1233746-00

PATIENT
  Sex: Male
  Weight: 86.71 kg

DRUGS (2)
  1. HUMIRA [Suspect]
     Indication: PSORIASIS
     Route: 058
     Dates: start: 20120508, end: 20140304
  2. CILAZAPRIL [Concomitant]
     Indication: BLOOD PRESSURE

REACTIONS (2)
  - Muscle rupture [Recovering/Resolving]
  - Psoriasis [Not Recovered/Not Resolved]
